FAERS Safety Report 24615097 (Version 1)
Quarter: 2024Q4

REPORT INFORMATION
  Report Type: Spontaneous
  Country: CH (occurrence: CH)
  Receive Date: 20241113
  Receipt Date: 20241113
  Transmission Date: 20250115
  Serious: Yes (Other)
  Sender: MYLAN
  Company Number: None

PATIENT
  Age: 71 Year
  Sex: Male

DRUGS (34)
  1. ARIXTRA [Suspect]
     Active Substance: FONDAPARINUX SODIUM
     Indication: Product used for unknown indication
     Dosage: 2.5 MILLIGRAM, QD
     Route: 065
     Dates: start: 20240913, end: 20241020
  2. AMOXICILLIN SODIUM [Suspect]
     Active Substance: AMOXICILLIN SODIUM
     Indication: Product used for unknown indication
     Dosage: 2 GRAM, Q4H (2 DOSES)
     Route: 065
     Dates: start: 20240915, end: 20241021
  3. CEFTRIAXONE [Suspect]
     Active Substance: CEFTRIAXONE
     Indication: Product used for unknown indication
     Dosage: 2 GRAM, BID
     Route: 065
     Dates: start: 20240915, end: 20241021
  4. LASIX [Suspect]
     Active Substance: FUROSEMIDE
     Indication: Product used for unknown indication
     Dosage: 5 MILLIGRAM, QH
     Route: 065
     Dates: start: 20240922, end: 20240925
  5. LASIX [Suspect]
     Active Substance: FUROSEMIDE
     Dosage: 7 MILLIGRAM, QH
     Route: 065
     Dates: start: 20241017, end: 20241022
  6. LASIX [Suspect]
     Active Substance: FUROSEMIDE
     Dosage: 20 MILLIGRAM, TOTAL
     Route: 065
     Dates: start: 20240930, end: 20240930
  7. LASIX [Suspect]
     Active Substance: FUROSEMIDE
     Dosage: 20 MILLIGRAM, Q8H
     Route: 065
     Dates: start: 20241003, end: 20241004
  8. LASIX [Suspect]
     Active Substance: FUROSEMIDE
     Dosage: 20 MILLIGRAM, Q8H
     Route: 065
     Dates: start: 20241014, end: 20241016
  9. LASIX [Suspect]
     Active Substance: FUROSEMIDE
     Dosage: 40 MILLIGRAM, Q8H
     Route: 065
     Dates: start: 20241004, end: 20241013
  10. CLARITHROMYCIN [Concomitant]
     Active Substance: CLARITHROMYCIN
     Dosage: UNK (SINGLE DOSE)
     Route: 065
     Dates: start: 20240913, end: 20240913
  11. AMIKACIN [Concomitant]
     Active Substance: AMIKACIN
     Dosage: UNK (SINGLE DOSE)
     Route: 065
     Dates: start: 20240912, end: 20240912
  12. AMOXICILLIN\CLAVULANATE POTASSIUM [Concomitant]
     Active Substance: AMOXICILLIN\CLAVULANATE POTASSIUM
     Dosage: 1.2 GRAM, Q8H
     Route: 065
     Dates: start: 20240912, end: 20240914
  13. AMOXICILLIN\CLAVULANATE POTASSIUM [Concomitant]
     Active Substance: AMOXICILLIN\CLAVULANATE POTASSIUM
     Dosage: 2.2 GRAM, Q8H
     Route: 065
     Dates: start: 20240915, end: 20240915
  14. TORSEMIDE [Concomitant]
     Active Substance: TORSEMIDE
     Dosage: 10 MILLIGRAM, QD
     Route: 065
     Dates: start: 20240919, end: 20240922
  15. TORSEMIDE [Concomitant]
     Active Substance: TORSEMIDE
     Dosage: 10 MILLIGRAM, QD
     Route: 065
     Dates: start: 20241004
  16. TORSEMIDE [Concomitant]
     Active Substance: TORSEMIDE
     Dosage: 30 MILLIGRAM, QD
     Route: 065
     Dates: start: 20240925, end: 20240926
  17. TORSEMIDE [Concomitant]
     Active Substance: TORSEMIDE
     Dosage: 30 MILLIGRAM, QD
     Route: 065
     Dates: start: 20240930
  18. TORSEMIDE [Concomitant]
     Active Substance: TORSEMIDE
     Dosage: 30 MILLIGRAM, QD
     Route: 065
     Dates: start: 20241001
  19. TORSEMIDE [Concomitant]
     Active Substance: TORSEMIDE
     Dosage: 40 MILLIGRAM, QD
     Route: 065
     Dates: start: 20241002, end: 20241002
  20. MORPHINE [Concomitant]
     Active Substance: MORPHINE
     Dosage: 2 MILLIGRAM QD
     Route: 042
     Dates: start: 20240923
  21. MORPHINE [Concomitant]
     Active Substance: MORPHINE
     Dosage: 2 MILLIGRAM QD
     Route: 042
     Dates: start: 20241016, end: 20241017
  22. MORPHINE [Concomitant]
     Active Substance: MORPHINE
     Dosage: 2.5 MILLIGRAM (SINGLE DOSE)
     Route: 048
     Dates: start: 20241003, end: 20241003
  23. ACETAMINOPHEN [Concomitant]
     Active Substance: ACETAMINOPHEN
     Dosage: 1000 MILLIGRAM (1-2X/)
     Route: 065
     Dates: start: 20240919, end: 20241011
  24. VITAMIN K [Concomitant]
     Active Substance: PHYTONADIONE
     Dosage: 10 MILLIGRAM, QD (SINGLE DOSE)
     Route: 065
     Dates: start: 20240915, end: 20240915
  25. BISOPROLOL [Concomitant]
     Active Substance: BISOPROLOL
     Dosage: 5 MILLIGRAM, QD
     Route: 065
  26. SIMVASTATIN [Concomitant]
     Active Substance: SIMVASTATIN
     Dosage: 20 MILLIGRAM, QD
     Route: 065
     Dates: end: 20240923
  27. TRAMADOL [Concomitant]
     Active Substance: TRAMADOL
     Dosage: 25 MILLIGRAM, PRN (AS NECESSARY)
     Route: 065
     Dates: start: 20240918, end: 20241009
  28. POTASSIUM CITRATE [Concomitant]
     Active Substance: POTASSIUM CITRATE
     Dosage: 30 MILLIMOLE (1 TABLET)
     Route: 065
     Dates: start: 20240913
  29. POTASSIUM CITRATE [Concomitant]
     Active Substance: POTASSIUM CITRATE
     Dosage: 30 MILLIMOLE, TID (3X/DAY)
     Route: 065
     Dates: start: 20240924, end: 20240929
  30. POTASSIUM CITRATE [Concomitant]
     Active Substance: POTASSIUM CITRATE
     Dosage: 30 MILLIMOLE, TID (3X/DAY)
     Route: 065
     Dates: start: 20241005, end: 20241007
  31. POTASSIUM CITRATE [Concomitant]
     Active Substance: POTASSIUM CITRATE
     Dosage: 30 MILLIMOLE (1 TABLET)
     Route: 065
     Dates: start: 20241009
  32. ESOMEPRAZOLE [Concomitant]
     Active Substance: ESOMEPRAZOLE
     Dosage: UNK
     Route: 065
     Dates: end: 20240912
  33. IRON POLYMALTOSE [Concomitant]
     Active Substance: IRON POLYMALTOSE
     Dosage: UNK
     Route: 065
     Dates: end: 20240912
  34. CHOLECALCIFEROL [Concomitant]
     Active Substance: CHOLECALCIFEROL
     Dosage: UNK
     Route: 065
     Dates: end: 20240912

REACTIONS (2)
  - Rash maculo-papular [Not Recovered/Not Resolved]
  - Eosinophilia [Recovered/Resolved]

NARRATIVE: CASE EVENT DATE: 20240919
